FAERS Safety Report 11882186 (Version 1)
Quarter: 2015Q4

REPORT INFORMATION
  Report Type: Spontaneous
  Country: US (occurrence: None)
  Receive Date: 20151230
  Receipt Date: 20151230
  Transmission Date: 20160305
  Serious: No
  Sender: FDA-Public Use
  Company Number: None

PATIENT
  Age: 67 Year
  Sex: Male
  Weight: 103.42 kg

DRUGS (2)
  1. PREDNISONE 10MM CVS [Suspect]
     Active Substance: PREDNISONE
     Indication: GOUT
     Dosage: 1 PILL
     Route: 048
     Dates: start: 20151118, end: 20151218
  2. PREDNISONE 10MM CVS [Suspect]
     Active Substance: PREDNISONE
     Indication: ASTHENIA
     Dosage: 1 PILL
     Route: 048
     Dates: start: 20151118, end: 20151218

REACTIONS (5)
  - Blood pressure increased [None]
  - Renal impairment [None]
  - Drug interaction [None]
  - Heart rate increased [None]
  - Metabolic disorder [None]

NARRATIVE: CASE EVENT DATE: 20151201
